FAERS Safety Report 16048462 (Version 3)
Quarter: 2019Q4

REPORT INFORMATION
  Report Type: Report from Study
  Country: AU (occurrence: AU)
  Receive Date: 20190307
  Receipt Date: 20191025
  Transmission Date: 20200122
  Serious: Yes (Other)
  Sender: FDA-Public Use
  Company Number: AU-JNJFOC-20190238583

PATIENT
  Age: 57 Year
  Sex: Male
  Weight: 88 kg

DRUGS (3)
  1. REMICADE [Suspect]
     Active Substance: INFLIXIMAB
     Route: 042
     Dates: start: 201903
  2. REMICADE [Suspect]
     Active Substance: INFLIXIMAB
     Route: 042
     Dates: start: 201907
  3. REMICADE [Suspect]
     Active Substance: INFLIXIMAB
     Indication: ANKYLOSING SPONDYLITIS
     Route: 042
     Dates: start: 20180312

REACTIONS (18)
  - Sleep disorder [Unknown]
  - Oedema peripheral [Unknown]
  - Fatigue [Not Recovered/Not Resolved]
  - Dislocation of vertebra [Recovered/Resolved]
  - Spinal fusion surgery [Unknown]
  - Decreased appetite [Not Recovered/Not Resolved]
  - Diarrhoea [Unknown]
  - Infusion site extravasation [Recovered/Resolved]
  - Product use issue [Unknown]
  - Depressed mood [Not Recovered/Not Resolved]
  - Mouth ulceration [Not Recovered/Not Resolved]
  - Headache [Not Recovered/Not Resolved]
  - Spinal stenosis [Recovered/Resolved]
  - Dysgeusia [Not Recovered/Not Resolved]
  - Off label use [Unknown]
  - Arterial stenosis [Recovered/Resolved]
  - Ankylosing spondylitis [Unknown]
  - Contusion [Not Recovered/Not Resolved]

NARRATIVE: CASE EVENT DATE: 20190220
